FAERS Safety Report 12945629 (Version 1)
Quarter: 2016Q4

REPORT INFORMATION
  Report Type: Spontaneous
  Country: ES (occurrence: ES)
  Receive Date: 20161115
  Receipt Date: 20161115
  Transmission Date: 20170207
  Serious: Yes (Other)
  Sender: FDA-Public Use
  Company Number: ES-SA-2016SA203480

PATIENT
  Age: 37 Year
  Sex: Female

DRUGS (7)
  1. FORMOTEROL [Concomitant]
     Active Substance: FORMOTEROL
     Dosage: FREQUENCY: EVERY 2 DAYS
     Route: 055
  2. LORAZEPAM. [Concomitant]
     Active Substance: LORAZEPAM
     Dosage: 1 MG, 1 VEZ AL DIA
     Route: 048
  3. BUDESONIDE. [Concomitant]
     Active Substance: BUDESONIDE
     Dosage: FREQUENCY: EVERY 2 DAYS
     Route: 055
  4. LEMTRADA [Suspect]
     Active Substance: ALEMTUZUMAB
     Indication: RELAPSING-REMITTING MULTIPLE SCLEROSIS
     Route: 042
     Dates: start: 20160918, end: 20160927
  5. LEMTRADA [Suspect]
     Active Substance: ALEMTUZUMAB
     Indication: RELAPSING-REMITTING MULTIPLE SCLEROSIS
     Route: 042
     Dates: start: 20160918, end: 20160927
  6. LEXATIN [Concomitant]
     Active Substance: BROMAZEPAM
     Dosage: 3 MG, 1 VEZ AL DIA
     Route: 048
  7. XALATAN [Concomitant]
     Active Substance: LATANOPROST
     Route: 047

REACTIONS (3)
  - Vaginal haemorrhage [Unknown]
  - Feeling hot [Recovered/Resolved]
  - Lymphopenia [Recovering/Resolving]

NARRATIVE: CASE EVENT DATE: 20160919
